FAERS Safety Report 19778237 (Version 1)
Quarter: 2021Q3

REPORT INFORMATION
  Report Type: Spontaneous
  Country: US (occurrence: US)
  Receive Date: 20210902
  Receipt Date: 20210902
  Transmission Date: 20211014
  Serious: No
  Sender: FDA-Public Use
  Company Number: None

PATIENT
  Age: 37 Year
  Sex: Female
  Weight: 78.3 kg

DRUGS (12)
  1. AIRBORNE ELDERBERRY GUMMIES [Concomitant]
  2. FENUGREEK [Concomitant]
     Active Substance: FENUGREEK SEED
  3. AIRBORNE CHEWABLES [Concomitant]
  4. PHENTERMINE. [Concomitant]
     Active Substance: PHENTERMINE
  5. DUONEB [Concomitant]
     Active Substance: ALBUTEROL SULFATE\IPRATROPIUM BROMIDE
  6. SINGULAIR [Concomitant]
     Active Substance: MONTELUKAST SODIUM
  7. MUCINEX INSTASOOTHE SORE THROAT PLUS SOOTHING COMFORT [Suspect]
     Active Substance: HEXYLRESORCINOL
     Indication: OROPHARYNGEAL PAIN
     Dosage: ?QUANTITY:40 DROP(S);?OTHER FREQUENCY:EVERY 2 HOURS;?
     Route: 048
     Dates: start: 20210825, end: 20210825
  8. PANTOPRAZOLE [Concomitant]
     Active Substance: PANTOPRAZOLE
  9. OXYBUTYNIN. [Concomitant]
     Active Substance: OXYBUTYNIN CHLORIDE
  10. NAPROXEN. [Concomitant]
     Active Substance: NAPROXEN
  11. RIZATRIPTAN. [Concomitant]
     Active Substance: RIZATRIPTAN
  12. ALBUTERNOL INHALER [Concomitant]

REACTIONS (3)
  - Tongue discomfort [None]
  - Tongue eruption [None]
  - Tongue erythema [None]

NARRATIVE: CASE EVENT DATE: 20210825
